FAERS Safety Report 10164621 (Version 2)
Quarter: 2014Q2

REPORT INFORMATION
  Report Type: Spontaneous
  Country: US (occurrence: US)
  Receive Date: 20140510
  Receipt Date: 20140510
  Transmission Date: 20141212
  Serious: Yes (Hospitalization)
  Sender: FDA-Public Use
  Company Number: US-BRISTOL-MYERS SQUIBB COMPANY-20123857

PATIENT
  Age: 43 Year
  Sex: Female

DRUGS (1)
  1. BYDUREON [Suspect]
     Indication: HYPERGLYCAEMIA
     Route: 058
     Dates: start: 20140109, end: 20140117

REACTIONS (1)
  - Swelling face [Unknown]
